FAERS Safety Report 5168967-4 (Version None)
Quarter: 2006Q4

REPORT INFORMATION
  Report Type: 
  Country: None (occurrence: None)
  Receive Date: 20061211
  Receipt Date: 20061201
  Transmission Date: 20070319
  Serious: Yes (Other)
  Sender: FDA-Public Use
  Company Number: JP-JPN-A200605149

PATIENT
  Age: 70 Year
  Sex: Female

DRUGS (4)
  1. PAXIL [Suspect]
     Indication: DEPRESSION
     Dosage: 10MG PER DAY
     Route: 048
     Dates: start: 20060410
  2. RESLIN [Concomitant]
     Dosage: 25MG PER DAY
     Route: 048
  3. AMOBAN [Concomitant]
     Dosage: 10MG PER DAY
     Route: 048
  4. UNKNOWN NAME [Concomitant]
     Dosage: 200MG PER DAY
     Route: 048

REACTIONS (2)
  - BRADYCARDIA [None]
  - LOSS OF CONSCIOUSNESS [None]
